FAERS Safety Report 6273820-9 (Version None)
Quarter: 2009Q3

REPORT INFORMATION
  Report Type: 
  Country: None (occurrence: None)
  Receive Date: 20090720
  Receipt Date: 20090707
  Transmission Date: 20100115
  Serious: Yes (Death)
  Sender: FDA-Public Use
  Company Number: US-MYLANLABS-2009S1012127

PATIENT
  Age: 21 Year
  Sex: Male

DRUGS (7)
  1. MERCAPTOPURINE TABLETS, USP [Suspect]
     Indication: INFLAMMATORY BOWEL DISEASE
     Dates: start: 19980101
  2. MERCAPTOPURINE TABLETS, USP [Suspect]
     Indication: COLITIS ULCERATIVE
     Dates: start: 19980101
  3. REMICADE [Suspect]
     Indication: INFLAMMATORY BOWEL DISEASE
     Dates: start: 20020601, end: 20061101
  4. REMICADE [Suspect]
     Indication: COLITIS ULCERATIVE
     Dates: start: 20020601, end: 20061101
  5. HUMIRA [Suspect]
     Indication: INFLAMMATORY BOWEL DISEASE
     Dates: start: 20061101, end: 20070601
  6. HUMIRA [Suspect]
     Indication: COLITIS ULCERATIVE
     Dates: start: 20061101, end: 20070601
  7. PREDNISONE TAB [Concomitant]
     Dates: start: 19980101

REACTIONS (1)
  - HEPATOSPLENIC T-CELL LYMPHOMA [None]
